FAERS Safety Report 17823685 (Version 1)
Quarter: 2020Q2

REPORT INFORMATION
  Report Type: Spontaneous
  Country: US (occurrence: US)
  Receive Date: 20200526
  Receipt Date: 20200526
  Transmission Date: 20200714
  Serious: No
  Sender: FDA-Public Use
  Company Number: US-PFIZER INC-2018532562

PATIENT
  Age: 59 Year
  Sex: Female
  Weight: 96.62 kg

DRUGS (3)
  1. LYRICA [Suspect]
     Active Substance: PREGABALIN
     Indication: MYOFASCIAL PAIN SYNDROME
     Dosage: 75 MG, 3X/DAY
     Route: 048
  2. LYRICA [Suspect]
     Active Substance: PREGABALIN
     Indication: MYALGIA
  3. LYRICA [Suspect]
     Active Substance: PREGABALIN
     Indication: FIBROMYALGIA

REACTIONS (2)
  - Feeling abnormal [Unknown]
  - Back disorder [Unknown]

NARRATIVE: CASE EVENT DATE: 202002
